FAERS Safety Report 4717077-6 (Version None)
Quarter: 2005Q3

REPORT INFORMATION
  Report Type: 
  Country: None (occurrence: None)
  Receive Date: 20050715
  Receipt Date: 20050331
  Transmission Date: 20060218
  Serious: Yes (Hospitalization)
  Sender: FDA-Public Use
  Company Number: 2005FR-00102

PATIENT
  Age: 49 Year
  Sex: Male

DRUGS (2)
  1. IBUPROFEN [Suspect]
     Indication: DRUG ABUSER
     Dosage: ORAL
     Route: 048
  2. CODEINE [Suspect]
     Indication: DRUG ABUSER
     Dosage: ORAL
     Route: 048

REACTIONS (11)
  - ASTHENIA [None]
  - DEHYDRATION [None]
  - DEPRESSED LEVEL OF CONSCIOUSNESS [None]
  - DRUG ABUSER [None]
  - EPIGASTRIC DISCOMFORT [None]
  - HYPERURICAEMIA [None]
  - HYPOKALAEMIA [None]
  - LETHARGY [None]
  - METABOLIC ACIDOSIS [None]
  - URINE POTASSIUM INCREASED [None]
  - VOMITING [None]
